FAERS Safety Report 25239033 (Version 2)
Quarter: 2025Q4

REPORT INFORMATION
  Report Type: Spontaneous
  Country: US (occurrence: US)
  Receive Date: 20250425
  Receipt Date: 20251023
  Transmission Date: 20260117
  Serious: Yes (Hospitalization, Other)
  Sender: CHEPLAPHARM
  Company Number: US-CHEPLA-2025005274

PATIENT
  Age: 41 Year
  Sex: Male

DRUGS (18)
  1. CLONAZEPAM [Interacting]
     Active Substance: CLONAZEPAM
  2. LUMRYZ [Interacting]
     Active Substance: SODIUM OXYBATE
     Dosage: EXTENDED-RELEASE ORAL SUSPENSION
     Dates: start: 2024, end: 20240712
  3. LUMRYZ [Interacting]
     Active Substance: SODIUM OXYBATE
     Dates: end: 20241207
  4. LUMRYZ [Interacting]
     Active Substance: SODIUM OXYBATE
     Dosage: AS OF 07-JAN-2025, THE STATUS OF THE TREATMENT WITH LUMRYZ WAS ONGOING.
  5. TOPIRAMATE [Interacting]
     Active Substance: TOPIRAMATE
  6. ADDERALL [Concomitant]
     Active Substance: AMPHETAMINE ASPARTATE\AMPHETAMINE SULFATE\DEXTROAMPHETAMINE SACCHARATE\DEXTROAMPHETAMINE SULFATE
  7. PANTOPRAZOLE [Concomitant]
     Active Substance: PANTOPRAZOLE
  8. PREDNISONE [Concomitant]
     Active Substance: PREDNISONE
  9. FLONASE [Concomitant]
     Active Substance: FLUTICASONE PROPIONATE
  10. LOSARTAN [Concomitant]
     Active Substance: LOSARTAN
  11. MELATONIN [Concomitant]
     Active Substance: MELATONIN
  12. TYLENOL [Concomitant]
     Active Substance: ACETAMINOPHEN
  13. ZYRTEC [Concomitant]
     Active Substance: CETIRIZINE HYDROCHLORIDE
  14. BUPROPION [Concomitant]
     Active Substance: BUPROPION
  15. MOTEGRITY [Concomitant]
     Active Substance: PRUCALOPRIDE SUCCINATE
  16. DILTIAZEM [Concomitant]
     Active Substance: DILTIAZEM
  17. TAMSULOSIN [Concomitant]
     Active Substance: TAMSULOSIN
  18. ATROVENT [Concomitant]
     Active Substance: IPRATROPIUM BROMIDE

REACTIONS (3)
  - Drug interaction [Unknown]
  - Speech disorder [Not Recovered/Not Resolved]
  - Cognitive disorder [Unknown]
